FAERS Safety Report 8060423-9 (Version None)
Quarter: 2012Q1

REPORT INFORMATION
  Report Type: 
  Country: None (occurrence: None)
  Receive Date: 20120120
  Receipt Date: 20120118
  Transmission Date: 20120608
  Serious: Yes (Hospitalization)
  Sender: FDA-Public Use
  Company Number: US-GLAXOSMITHKLINE-A0961986A

PATIENT
  Age: 52 Year
  Sex: Male

DRUGS (2)
  1. NO CONCURRENT MEDICATION [Concomitant]
  2. LAMICTAL XR [Suspect]
     Indication: CONVULSION
     Dosage: 600MG PER DAY
     Route: 048
     Dates: start: 20090401

REACTIONS (5)
  - DISABILITY [None]
  - SLUGGISHNESS [None]
  - DRUG INEFFECTIVE [None]
  - CONVULSION [None]
  - HYPOKINESIA [None]
